FAERS Safety Report 22670837 (Version 2)
Quarter: 2024Q3

REPORT INFORMATION
  Report Type: Spontaneous
  Country: US (occurrence: US)
  Receive Date: 20230705
  Receipt Date: 20240702
  Transmission Date: 20241016
  Serious: No
  Sender: SAREPTA THERAPEUTICS
  Company Number: US-SAREPTA THERAPEUTICS INC.-SRP2023-003509

PATIENT
  Age: 13 Year
  Sex: Male
  Weight: 58.7 kg

DRUGS (6)
  1. EXONDYS 51 [Suspect]
     Active Substance: ETEPLIRSEN
     Indication: Duchenne muscular dystrophy
     Dosage: 1700 MILLIGRAM, WEEKLY
     Route: 042
     Dates: start: 20170320, end: 20230608
  2. EXONDYS 51 [Suspect]
     Active Substance: ETEPLIRSEN
     Dosage: 1700 MILLIGRAM, WEEKLY
     Route: 042
     Dates: start: 20230620
  3. DEFLAZACORT [Concomitant]
     Active Substance: DEFLAZACORT
     Indication: Duchenne muscular dystrophy
     Dosage: 30 MILLIGRAM, QD WITH BREAKFAST
     Route: 048
     Dates: start: 20220802
  4. VASOTEC [Concomitant]
     Active Substance: ENALAPRIL MALEATE
     Indication: Duchenne muscular dystrophy
     Dosage: 2.5 MILLIGRAM, BID
     Route: 048
  5. VASOTEC [Concomitant]
     Active Substance: ENALAPRIL MALEATE
     Indication: Cardiovascular event prophylaxis
  6. LEVOCARNITINE [Concomitant]
     Active Substance: LEVOCARNITINE
     Indication: Supplementation therapy
     Dosage: 5 MILLILITER, BID
     Route: 048

REACTIONS (4)
  - Underdose [Unknown]
  - Intentional dose omission [Unknown]
  - No adverse event [Unknown]
  - Weight increased [Unknown]

NARRATIVE: CASE EVENT DATE: 20230523
